FAERS Safety Report 8216670-6 (Version None)
Quarter: 2012Q1

REPORT INFORMATION
  Report Type: 
  Country: None (occurrence: None)
  Receive Date: 20120316
  Receipt Date: 20120305
  Transmission Date: 20120608
  Serious: Yes (Hospitalization, Other)
  Sender: FDA-Public Use
  Company Number: JP-BRISTOL-MYERS SQUIBB COMPANY-16453037

PATIENT
  Age: 73 Year
  Sex: Male

DRUGS (2)
  1. ERBITUX [Suspect]
     Indication: COLON CANCER
     Route: 042
     Dates: start: 20090520, end: 20091007
  2. LEVOFLOXACIN [Concomitant]

REACTIONS (8)
  - DRY SKIN [None]
  - PRURITUS [None]
  - LOSS OF CONSCIOUSNESS [None]
  - PARONYCHIA [None]
  - SEBORRHOEIC DERMATITIS [None]
  - ALTERED STATE OF CONSCIOUSNESS [None]
  - SKIN DISORDER [None]
  - DERMATITIS ACNEIFORM [None]
